FAERS Safety Report 5893158-9 (Version None)
Quarter: 2008Q3

REPORT INFORMATION
  Report Type: 
  Country: None (occurrence: None)
  Receive Date: 20080923
  Receipt Date: 20080124
  Transmission Date: 20090109
  Serious: No
  Sender: FDA-Public Use
  Company Number: US-ASTRAZENECA-2007UW20610

PATIENT
  Age: 392 Month
  Sex: Male
  Weight: 168.2 kg

DRUGS (11)
  1. SEROQUEL [Suspect]
     Indication: SLEEP DISORDER
     Route: 048
     Dates: start: 20010701, end: 20060401
  2. SEROQUEL [Suspect]
     Indication: BIPOLAR DISORDER
     Route: 048
     Dates: start: 20010701, end: 20060401
  3. WELLBUTRIN [Concomitant]
     Route: 048
     Dates: start: 20010601
  4. MERIDIA [Concomitant]
     Indication: WEIGHT DECREASED
     Route: 048
     Dates: start: 20040216, end: 20040401
  5. ADIPEX [Concomitant]
     Route: 048
     Dates: start: 20050606, end: 20050901
  6. DIETHYLPROPION HCL [Concomitant]
  7. XENICAL [Concomitant]
     Route: 048
     Dates: start: 20050401, end: 20050601
  8. DIETHYLPROPION HCL [Concomitant]
     Route: 048
     Dates: start: 20011101, end: 20020101
  9. AMBIEN [Concomitant]
     Route: 048
  10. THYROID TAB [Concomitant]
  11. THYROID TABS [Concomitant]

REACTIONS (8)
  - GROIN PAIN [None]
  - IRRITABILITY [None]
  - OBESITY [None]
  - RASH [None]
  - SKIN DISCOLOURATION [None]
  - TYPE 2 DIABETES MELLITUS [None]
  - URINARY TRACT INFECTION [None]
  - WEIGHT INCREASED [None]
